FAERS Safety Report 18233819 (Version 3)
Quarter: 2021Q2

REPORT INFORMATION
  Report Type: Report from Study
  Country: JP (occurrence: JP)
  Receive Date: 20200904
  Receipt Date: 20210401
  Transmission Date: 20210717
  Serious: Yes (Other)
  Sender: FDA-Public Use
  Company Number: JP-KYOWAKIRIN-2020AKK014221

PATIENT

DRUGS (3)
  1. BUROSUMAB [Suspect]
     Active Substance: BUROSUMAB
     Dosage: 60 MG, 1X/4 WEEKS
     Route: 058
     Dates: start: 20201217
  2. BUROSUMAB [Suspect]
     Active Substance: BUROSUMAB
     Dosage: 55 MG, 1X/4 WEEKS
     Route: 058
     Dates: start: 20201022, end: 20201119
  3. BUROSUMAB [Suspect]
     Active Substance: BUROSUMAB
     Indication: HEREDITARY HYPOPHOSPHATAEMIC RICKETS
     Dosage: 50 MG, 1X/4 WEEKS
     Route: 058
     Dates: start: 20200116, end: 20200924

REACTIONS (1)
  - Deafness neurosensory [Recovering/Resolving]

NARRATIVE: CASE EVENT DATE: 202001
